FAERS Safety Report 9152643 (Version 1)
Quarter: 2013Q1

REPORT INFORMATION
  Report Type: Spontaneous
  Country: US (occurrence: US)
  Receive Date: 20130308
  Receipt Date: 20130308
  Transmission Date: 20140127
  Serious: No
  Sender: FDA-Public Use
  Company Number: US-ASTRAZENECA-2013SE09956

PATIENT
  Age: 64 Year
  Sex: Male
  Weight: 74.8 kg

DRUGS (7)
  1. NEXIUM [Suspect]
     Indication: BARRETT^S OESOPHAGUS
     Route: 048
     Dates: start: 2003
  2. NEXIUM [Suspect]
     Indication: EROSIVE OESOPHAGITIS
     Route: 048
     Dates: start: 2003
  3. LISINOPRIL [Suspect]
     Indication: HYPERTENSION
     Route: 048
  4. CRESTOR [Suspect]
     Indication: CORONARY ARTERY DISEASE
     Route: 048
     Dates: start: 201301
  5. CRESTOR [Suspect]
     Indication: ARTERIOSCLEROSIS CORONARY ARTERY
     Route: 048
     Dates: start: 201301
  6. ADVAIR [Concomitant]
     Indication: ASTHMA
     Dosage: 100/50 TWICE DAILY
  7. CELEXA [Concomitant]

REACTIONS (6)
  - Achlorhydria [Unknown]
  - Adverse event [Unknown]
  - Hypertension [Unknown]
  - Coronary artery disease [Unknown]
  - Vascular calcification [Unknown]
  - Off label use [Unknown]
